FAERS Safety Report 7737836-5 (Version None)
Quarter: 2011Q3

REPORT INFORMATION
  Report Type: 
  Country: None (occurrence: None)
  Receive Date: 20110908
  Receipt Date: 20110830
  Transmission Date: 20111222
  Serious: Yes (Other)
  Sender: FDA-Public Use
  Company Number: PHEH2011US02956

PATIENT
  Sex: Female

DRUGS (1)
  1. GLEEVEC [Suspect]
     Indication: SOFT TISSUE NEOPLASM
     Dosage: 400 MG, BID
     Route: 048
     Dates: start: 20110328, end: 20110730

REACTIONS (6)
  - ABDOMINAL DISCOMFORT [None]
  - PYREXIA [None]
  - DRY SKIN [None]
  - MENSTRUAL DISORDER [None]
  - LIVER DISORDER [None]
  - RASH [None]
